FAERS Safety Report 6545211-4 (Version None)
Quarter: 2010Q1

REPORT INFORMATION
  Report Type: 
  Country: None (occurrence: None)
  Receive Date: 20100115
  Receipt Date: 20100107
  Transmission Date: 20100710
  Serious: No
  Sender: FDA-Public Use
  Company Number: 469140

PATIENT
  Age: 50 Year
  Sex: Male
  Weight: 60.782 kg

DRUGS (4)
  1. OXALIPLATIN [Suspect]
     Indication: DRUG USE FOR UNKNOWN INDICATION
     Dosage: 144 MG EVERY 14 DAYS, INTRAVENOUS
     Route: 042
     Dates: start: 20100106, end: 20100106
  2. ALOXI [Concomitant]
  3. DEXAMETHASONE [Concomitant]
  4. BENADRYL [Concomitant]

REACTIONS (4)
  - BLOOD PRESSURE DECREASED [None]
  - FLUSHING [None]
  - PALPITATIONS [None]
  - RASH [None]
